FAERS Safety Report 24351342 (Version 1)
Quarter: 2024Q3

REPORT INFORMATION
  Report Type: Spontaneous
  Country: US (occurrence: US)
  Receive Date: 20240923
  Receipt Date: 20240923
  Transmission Date: 20241017
  Serious: No
  Sender: JOHNSON AND JOHNSON
  Company Number: US-JNJFOC-20240956559

PATIENT

DRUGS (1)
  1. TALVEY [Suspect]
     Active Substance: TALQUETAMAB-TGVS
     Indication: Product used for unknown indication
     Route: 065
     Dates: start: 202310

REACTIONS (4)
  - Ageusia [Recovered/Resolved]
  - Salivary hyposecretion [Unknown]
  - Skin exfoliation [Recovering/Resolving]
  - Onychomadesis [Not Recovered/Not Resolved]
